FAERS Safety Report 5397122-8 (Version None)
Quarter: 2007Q3

REPORT INFORMATION
  Report Type: 
  Country: None (occurrence: None)
  Receive Date: 20070725
  Receipt Date: 20070713
  Transmission Date: 20080115
  Serious: Yes (Other)
  Sender: FDA-Public Use
  Company Number: US-PFIZER INC-2007036532

PATIENT
  Sex: Female
  Weight: 61.7 kg

DRUGS (16)
  1. CHANTIX [Suspect]
     Indication: SMOKING CESSATION THERAPY
     Dates: start: 20070301, end: 20070701
  2. CHANTIX [Suspect]
     Indication: NICOTINE DEPENDENCE
  3. CARBAMAZEPINE [Concomitant]
  4. TRAMADOL HCL [Concomitant]
  5. TOPAMAX [Concomitant]
  6. ZOLOFT [Concomitant]
  7. CITALOPRAM HYDROBROMIDE [Concomitant]
  8. ANASTROZOLE [Concomitant]
  9. FLEXERIL [Concomitant]
  10. NEXIUM [Concomitant]
  11. LIPITOR [Concomitant]
  12. DOCUSATE [Concomitant]
  13. CLONIDINE [Concomitant]
  14. CLINDAMYCIN HCL [Concomitant]
  15. KLONOPIN [Concomitant]
  16. TRAZODONE HCL [Concomitant]

REACTIONS (7)
  - ABNORMAL DREAMS [None]
  - DIZZINESS [None]
  - FLATULENCE [None]
  - IMPAIRED GASTRIC EMPTYING [None]
  - MEDICATION ERROR [None]
  - NAUSEA [None]
  - WEIGHT DECREASED [None]
